FAERS Safety Report 10878438 (Version 1)
Quarter: 2015Q1

REPORT INFORMATION
  Report Type: Spontaneous
  Country: US (occurrence: US)
  Receive Date: 20150302
  Receipt Date: 20150302
  Transmission Date: 20150721
  Serious: No
  Sender: FDA-Public Use
  Company Number: US-ABBVIE-14P-163-1213945-00

PATIENT
  Age: 62 Year
  Sex: Male
  Weight: 74.91 kg

DRUGS (3)
  1. ANDROGEL [Suspect]
     Active Substance: TESTOSTERONE
     Indication: HYPOGONADISM MALE
  2. ANDROGEL [Suspect]
     Active Substance: TESTOSTERONE
     Indication: HYPOGONADISM MALE
     Route: 061
     Dates: start: 20120103, end: 20131017
  3. ANDROGEL [Suspect]
     Active Substance: TESTOSTERONE
     Indication: BLOOD TESTOSTERONE DECREASED
     Dosage: UNKNOWN DOSE
     Route: 061
     Dates: start: 20100920, end: 20110920

REACTIONS (15)
  - Polyneuropathy idiopathic progressive [Unknown]
  - Polyp [Unknown]
  - Facial paresis [Unknown]
  - Immunoglobulins increased [Unknown]
  - Monoclonal gammopathy [Unknown]
  - Pulmonary mass [Unknown]
  - Neuropathy peripheral [Not Recovered/Not Resolved]
  - Myalgia [Unknown]
  - Hypoaesthesia [Unknown]
  - CSF myelin basic protein [Unknown]
  - Carpal tunnel syndrome [Unknown]
  - Monoclonal gammopathy [Unknown]
  - Anaemia [Unknown]
  - Gait disturbance [Unknown]
  - Blood testosterone decreased [Unknown]

NARRATIVE: CASE EVENT DATE: 20130917
